FAERS Safety Report 21776478 (Version 2)
Quarter: 2022Q4

REPORT INFORMATION
  Report Type: Report from Study
  Country: US (occurrence: US)
  Receive Date: 20221226
  Receipt Date: 20221227
  Transmission Date: 20230113
  Serious: No
  Sender: FDA-Public Use
  Company Number: US-ABBVIE-4244601

PATIENT
  Sex: Male

DRUGS (1)
  1. HUMIRA [Suspect]
     Active Substance: ADALIMUMAB
     Indication: Rheumatoid arthritis
     Route: 058
     Dates: start: 20221219

REACTIONS (4)
  - Device issue [Not Recovered/Not Resolved]
  - Limb injury [Recovering/Resolving]
  - Incorrect dose administered [Unknown]
  - Injection site erythema [Unknown]
